FAERS Safety Report 8596172-8 (Version None)
Quarter: 2012Q3

REPORT INFORMATION
  Report Type: 
  Country: None (occurrence: None)
  Receive Date: 20120815
  Receipt Date: 20120809
  Transmission Date: 20120928
  Serious: Yes (Death, Hospitalization)
  Sender: FDA-Public Use
  Company Number: US-GLAXOSMITHKLINE-A0981743A

PATIENT
  Age: 56 Year
  Sex: Male

DRUGS (1)
  1. FLOLAN [Suspect]
     Indication: PRODUCT USED FOR UNKNOWN INDICATION
     Dosage: 17.16NGKM CONTINUOUS
     Route: 065
     Dates: start: 20120524

REACTIONS (4)
  - RIGHT VENTRICULAR FAILURE [None]
  - DYSPNOEA [None]
  - FLUID OVERLOAD [None]
  - OEDEMA [None]
